FAERS Safety Report 10470558 (Version 1)
Quarter: 2014Q3

REPORT INFORMATION
  Report Type: Spontaneous
  Country: US (occurrence: None)
  Receive Date: 20140908
  Receipt Date: 20140908
  Transmission Date: 20150326
  Serious: Yes (Other)
  Sender: FDA-Public Use
  Company Number: FK201303401

PATIENT
  Age: 58 Year
  Sex: Male

DRUGS (3)
  1. ROLAPITANT (ROLAPITANT) (ROLAPITANT) [Suspect]
     Active Substance: ROLAPITANT
     Indication: PROPHYLAXIS OF NAUSEA AND VOMITING
  2. CISPLATIN INJECTION (CISPLATIN) (CISPLATIN) [Suspect]
     Active Substance: CISPLATIN
     Indication: PRODUCT USED FOR UNKNOWN INDICATION
  3. ETOPOSIDE INJECTION USP (ETOPOSIDE) (ETOPOSIDE) [Suspect]
     Active Substance: ETOPOSIDE
     Indication: PRODUCT USED FOR UNKNOWN INDICATION

REACTIONS (1)
  - Neutropenia [None]
